FAERS Safety Report 11078420 (Version 2)
Quarter: 2015Q2

REPORT INFORMATION
  Report Type: Spontaneous
  Country: GB (occurrence: GB)
  Receive Date: 20150430
  Receipt Date: 20150519
  Transmission Date: 20150821
  Serious: Yes (Other)
  Sender: FDA-Public Use
  Company Number: GB-BIOGENIDEC-2015BI054961

PATIENT
  Age: 52 Year

DRUGS (1)
  1. TYSABRI [Suspect]
     Active Substance: NATALIZUMAB
     Indication: PRODUCT USED FOR UNKNOWN INDICATION
     Dates: end: 20150213

REACTIONS (1)
  - Squamous cell carcinoma of the oral cavity [Unknown]

NARRATIVE: CASE EVENT DATE: 201503
